FAERS Safety Report 25076872 (Version 8)
Quarter: 2025Q3

REPORT INFORMATION
  Report Type: Spontaneous
  Country: US (occurrence: US)
  Receive Date: 20250314
  Receipt Date: 20250912
  Transmission Date: 20251020
  Serious: Yes (Other)
  Sender: MALLINCKRODT
  Company Number: US-MALLINCKRODT-MNK202501257

PATIENT
  Age: 73 Year
  Sex: Female

DRUGS (2)
  1. CORTICOTROPIN [Suspect]
     Active Substance: CORTICOTROPIN
     Indication: Iridocyclitis
     Route: 058
     Dates: start: 202501, end: 2025
  2. CORTICOTROPIN [Suspect]
     Active Substance: CORTICOTROPIN
     Dates: start: 20250309

REACTIONS (5)
  - Corneal disorder [Not Recovered/Not Resolved]
  - Shunt malfunction [Unknown]
  - Intraocular pressure increased [Unknown]
  - Weight increased [Unknown]
  - Increased appetite [Unknown]

NARRATIVE: CASE EVENT DATE: 20250101
